FAERS Safety Report 18356725 (Version 1)
Quarter: 2020Q4

REPORT INFORMATION
  Report Type: Spontaneous
  Country: US (occurrence: US)
  Receive Date: 20201007
  Receipt Date: 20201007
  Transmission Date: 20210114
  Serious: No
  Sender: FDA-Public Use
  Company Number: US-SPROUT PHARMACEUTICALS, INC.-2019SP000073

PATIENT
  Age: 66 Year
  Sex: Female
  Weight: 56.75 kg

DRUGS (1)
  1. ADDYI [Suspect]
     Active Substance: FLIBANSERIN
     Indication: LIBIDO DISORDER
     Dosage: 100 MG BY MOUTH ONCE DAILY AT BEDTIME
     Route: 048
     Dates: start: 20190709, end: 20190712

REACTIONS (3)
  - Feeling abnormal [Recovered/Resolved]
  - Social alcohol drinker [Not Recovered/Not Resolved]
  - Vertigo [Recovered/Resolved]

NARRATIVE: CASE EVENT DATE: 20190711
